FAERS Safety Report 6360401-1 (Version None)
Quarter: 2009Q3

REPORT INFORMATION
  Report Type: 
  Country: None (occurrence: None)
  Receive Date: 20090917
  Receipt Date: 20090909
  Transmission Date: 20100115
  Serious: Yes (Other)
  Sender: FDA-Public Use
  Company Number: PH-PFIZER INC-2009267394

PATIENT
  Age: 42 Year

DRUGS (2)
  1. CELEBREX [Suspect]
     Indication: ARTHRITIS
     Dosage: 400 MG, SINGLE
     Dates: start: 20090801, end: 20090801
  2. CELEBREX [Suspect]
     Dosage: 200 MG, AS NEEDED

REACTIONS (5)
  - ASTHENIA [None]
  - ATRIAL FIBRILLATION [None]
  - FLUSHING [None]
  - HEADACHE [None]
  - PALPITATIONS [None]
